FAERS Safety Report 24467010 (Version 2)
Quarter: 2025Q2

REPORT INFORMATION
  Report Type: Report from Study
  Country: US (occurrence: US)
  Receive Date: 20241018
  Receipt Date: 20250502
  Transmission Date: 20250717
  Serious: Yes (Other)
  Sender: TAKEDA
  Company Number: US-TAKEDA-2024TUS033278

PATIENT
  Sex: Female

DRUGS (3)
  1. HUMAN IMMUNOGLOBULIN G [Suspect]
     Active Substance: HUMAN IMMUNOGLOBULIN G
     Indication: Primary immunodeficiency syndrome
     Dosage: 7.5 GRAM, 1/WEEK
  2. HUMAN IMMUNOGLOBULIN G [Suspect]
     Active Substance: HUMAN IMMUNOGLOBULIN G
     Indication: Immunodeficiency common variable
  3. HUMAN IMMUNOGLOBULIN G [Suspect]
     Active Substance: HUMAN IMMUNOGLOBULIN G
     Dosage: UNK UNK, Q2WEEKS

REACTIONS (13)
  - Neuropathy peripheral [Unknown]
  - Infection [Unknown]
  - Illness [Unknown]
  - Inappropriate schedule of product administration [Unknown]
  - Infusion site swelling [Unknown]
  - Infusion site pruritus [Unknown]
  - Meniscus injury [Unknown]
  - Bronchitis [Unknown]
  - Carpal tunnel syndrome [Unknown]
  - Tendon disorder [Unknown]
  - Dyspnoea [Unknown]
  - Fatigue [Unknown]
  - Arthralgia [Unknown]
